FAERS Safety Report 13747406 (Version 1)
Quarter: 2017Q3

REPORT INFORMATION
  Report Type: Spontaneous
  Country: AU (occurrence: AU)
  Receive Date: 20170712
  Receipt Date: 20170712
  Transmission Date: 20171127
  Serious: Yes (Death)
  Sender: FDA-Public Use
  Company Number: AU-BAYER-2017-134265

PATIENT
  Age: 30 Year
  Sex: Male

DRUGS (1)
  1. APROTININ [Suspect]
     Active Substance: APROTININ

REACTIONS (1)
  - Myocardial infarction [Fatal]
